FAERS Safety Report 13798500 (Version 3)
Quarter: 2017Q3

REPORT INFORMATION
  Report Type: Spontaneous
  Country: JP (occurrence: JP)
  Receive Date: 20170727
  Receipt Date: 20170908
  Transmission Date: 20171127
  Serious: Yes (Hospitalization)
  Sender: FDA-Public Use
  Company Number: JP-ASTRAZENECA-2017SE75107

PATIENT
  Age: 81 Year
  Sex: Male
  Weight: 52 kg

DRUGS (9)
  1. CALONAL [Concomitant]
     Active Substance: ACETAMINOPHEN
     Dosage: 600 MG THREE TIMES A DAY, AFTER EACH MEAL
     Route: 048
  2. IRESSA [Suspect]
     Active Substance: GEFITINIB
     Indication: LUNG ADENOCARCINOMA
     Route: 048
     Dates: start: 20160509, end: 20170317
  3. ALACEPRIL [Concomitant]
     Active Substance: ALACEPRIL
     Dosage: 25 MG EVERY DAY, AFTER BREAKFAST
     Route: 048
  4. NEUROVITAN [Concomitant]
     Active Substance: VITAMINS
     Dosage: 1 DF EVERY DAY, AFTER BREAKFAST
     Route: 048
  5. HIRUDOID [Concomitant]
     Active Substance: GLYCOSAMINOGLYCANS
     Dosage: OPTIMAL DOSE, WHOLE BODY, SIX TUBES DAILY
     Route: 062
  6. ALLEGRA [Concomitant]
     Active Substance: FEXOFENADINE HYDROCHLORIDE
     Dosage: 60 MG TWO TIMES A DAY, AFTER BREAKFAST AND EVENING MEAL
     Route: 048
  7. AMLODIPINE [Concomitant]
     Active Substance: AMLODIPINE BESYLATE
     Indication: HYPERTENSION
     Dosage: 5 MG, EVERY DAY, AFTER BREAKFAST
     Route: 048
  8. SUCRALFATE. [Concomitant]
     Active Substance: SUCRALFATE
     Dosage: 1 G TWO TIMES A DAY, AFTER BREAKFAST AND EVENING MEAL
     Route: 048
  9. GENINAX [Concomitant]
     Active Substance: GARENOXACIN MESYLATE
     Dosage: 400 MG EVERY DAY, AFTER BREAKFAST
     Route: 048

REACTIONS (1)
  - Pulmonary alveolar haemorrhage [Recovering/Resolving]

NARRATIVE: CASE EVENT DATE: 20170317
